FAERS Safety Report 16227989 (Version 2)
Quarter: 2019Q2

REPORT INFORMATION
  Report Type: Spontaneous
  Country: IN (occurrence: IN)
  Receive Date: 20190423
  Receipt Date: 20190429
  Transmission Date: 20190711
  Serious: Yes (Hospitalization, Other)
  Sender: FDA-Public Use
  Company Number: IN-AMGEN-INDSP2019061960

PATIENT
  Age: 74 Year
  Sex: Male

DRUGS (2)
  1. PROLIA [Suspect]
     Active Substance: DENOSUMAB
     Indication: HYPERPARATHYROIDISM
     Dosage: UNK
     Route: 065
  2. CINACALCET HCL [Concomitant]
     Active Substance: CINACALCET HYDROCHLORIDE
     Indication: HYPERPARATHYROIDISM
     Dosage: UNK

REACTIONS (6)
  - Perineal abscess [Unknown]
  - Testicular swelling [Unknown]
  - Hallucination [Unknown]
  - Fall [Unknown]
  - Pathological fracture [Unknown]
  - Off label use [Unknown]
